FAERS Safety Report 7582278-9 (Version None)
Quarter: 2011Q2

REPORT INFORMATION
  Report Type: 
  Country: None (occurrence: None)
  Receive Date: 20110630
  Receipt Date: 20110118
  Transmission Date: 20111010
  Serious: Yes (Other)
  Sender: FDA-Public Use
  Company Number: US-BAYER-201035765NA

PATIENT
  Age: 38 Year
  Sex: Female

DRUGS (5)
  1. FAMOTIDINE [Concomitant]
     Indication: DYSPEPSIA
     Dosage: 20 MG, UNK
  2. FAMOTIDINE [Concomitant]
     Indication: GASTROOESOPHAGEAL REFLUX DISEASE
  3. IRON SUPPLEMENTS [Concomitant]
     Indication: ANAEMIA
  4. HYZAAR [Concomitant]
     Indication: HYPERTENSION
  5. YASMIN [Suspect]
     Indication: ORAL CONTRACEPTION
     Dosage: UNK UNK, UNK
     Route: 048
     Dates: start: 20030201, end: 20091007

REACTIONS (5)
  - MENTAL DISORDER [None]
  - BILE DUCT STONE [None]
  - BILIARY DYSKINESIA [None]
  - GALLBLADDER DISORDER [None]
  - CHOLECYSTITIS ACUTE [None]
